FAERS Safety Report 6956429-0 (Version None)
Quarter: 2010Q3

REPORT INFORMATION
  Report Type: 
  Country: None (occurrence: None)
  Receive Date: 20100830
  Receipt Date: 20100826
  Transmission Date: 20110219
  Serious: Yes (Hospitalization)
  Sender: FDA-Public Use
  Company Number: B0671710A

PATIENT
  Sex: Female

DRUGS (2)
  1. AUGMENTIN '125' [Suspect]
     Indication: PRODUCT USED FOR UNKNOWN INDICATION
     Dosage: 1G SINGLE DOSE
     Route: 042
     Dates: start: 20090116, end: 20090116
  2. SOLU-MEDROL [Concomitant]
     Dosage: 60MG PER DAY
     Route: 042
     Dates: start: 20090116

REACTIONS (8)
  - BRONCHOSPASM [None]
  - DERMATITIS EXFOLIATIVE [None]
  - ERYTHEMA [None]
  - PRURITUS [None]
  - RALES [None]
  - RESPIRATORY DISORDER [None]
  - RESPIRATORY DISTRESS [None]
  - TACHYPNOEA [None]
